FAERS Safety Report 17311611 (Version 1)
Quarter: 2020Q1

REPORT INFORMATION
  Report Type: Spontaneous
  Country: US (occurrence: US)
  Receive Date: 20200123
  Receipt Date: 20200123
  Transmission Date: 20200409
  Serious: No
  Sender: FDA-Public Use
  Company Number: US-ROCHE-2261022

PATIENT

DRUGS (7)
  1. METHOTREXATE. [Suspect]
     Active Substance: METHOTREXATE
     Indication: RHEUMATOID ARTHRITIS
     Dosage: FOR 1 YEAR
     Route: 065
  2. REMICADE [Concomitant]
     Active Substance: INFLIXIMAB
     Dosage: FOR 2 YEARS
     Route: 065
  3. XELJANZ [Concomitant]
     Active Substance: TOFACITINIB CITRATE
     Route: 048
  4. RITUXAN [Suspect]
     Active Substance: RITUXIMAB
     Indication: RHEUMATOID ARTHRITIS
     Dosage: 1 MONTH
     Route: 065
  5. ENBREL [Suspect]
     Active Substance: ETANERCEPT
     Indication: RHEUMATOID ARTHRITIS
     Dosage: FOR 16 MONTH
     Route: 065
  6. SIMPONI [Concomitant]
     Active Substance: GOLIMUMAB
     Dosage: FOR 14 MONTH
     Route: 065
  7. ORENCIA [Concomitant]
     Active Substance: ABATACEPT
     Dosage: FOR 1 MONTH
     Route: 065

REACTIONS (1)
  - Dermatitis allergic [Unknown]
